FAERS Safety Report 8808122 (Version 2)
Quarter: 2015Q2

REPORT INFORMATION
  Report Type: Report from Study
  Country: US (occurrence: US)
  Receive Date: 20120925
  Receipt Date: 20150629
  Transmission Date: 20150821
  Serious: Yes (Death, Other)
  Sender: FDA-Public Use
  Company Number: US-ROCHE-1129578

PATIENT
  Sex: Female
  Weight: 56 kg

DRUGS (12)
  1. AVASTIN [Suspect]
     Active Substance: BEVACIZUMAB
     Indication: BREAST CANCER FEMALE
     Route: 042
  2. LISINOPRIL. [Concomitant]
     Active Substance: LISINOPRIL
     Route: 065
  3. AVASTIN [Suspect]
     Active Substance: BEVACIZUMAB
     Route: 042
  4. DECADRON [Concomitant]
     Active Substance: DEXAMETHASONE
     Route: 042
  5. SPIRONOLACTONE. [Concomitant]
     Active Substance: SPIRONOLACTONE
     Route: 065
  6. PLAVIX [Concomitant]
     Active Substance: CLOPIDOGREL BISULFATE
  7. ANZEMET [Concomitant]
     Active Substance: DOLASETRON MESYLATE
     Route: 042
  8. PROCRIT [Concomitant]
     Active Substance: ERYTHROPOIETIN
     Route: 058
  9. LANOXIN [Concomitant]
     Active Substance: DIGOXIN
     Route: 065
  10. ALTEPLASE [Concomitant]
     Active Substance: ALTEPLASE
     Route: 042
  11. ZOMETA [Concomitant]
     Active Substance: ZOLEDRONIC ACID
     Route: 042
  12. GEMZAR [Concomitant]
     Active Substance: GEMCITABINE HYDROCHLORIDE
     Route: 042

REACTIONS (17)
  - Nausea [Unknown]
  - Dyspnoea exertional [Unknown]
  - Peripheral swelling [Unknown]
  - Ill-defined disorder [Unknown]
  - Asthenia [Unknown]
  - Cytopenia [Unknown]
  - Pain in extremity [Unknown]
  - Cardiac failure congestive [Unknown]
  - Disease progression [Unknown]
  - Muscle spasms [Unknown]
  - Death [Fatal]
  - Restlessness [Unknown]
  - Off label use [Unknown]
  - Hypoaesthesia [Unknown]
  - Peripheral coldness [Unknown]
  - Poor quality sleep [Unknown]
  - Constipation [Unknown]
